FAERS Safety Report 5525855-9 (Version None)
Quarter: 2007Q4

REPORT INFORMATION
  Report Type: 
  Country: None (occurrence: None)
  Receive Date: 20071126
  Receipt Date: 20071112
  Transmission Date: 20080405
  Serious: Yes (Other)
  Sender: FDA-Public Use
  Company Number: BR-AVENTIS-200715387EU

PATIENT
  Age: 64 Year
  Sex: Male
  Weight: 72 kg

DRUGS (9)
  1. LASIX [Suspect]
     Dosage: DOSE: 2 TABLETS
     Route: 048
     Dates: start: 20071109
  2. HIDANTAL [Concomitant]
     Dosage: DOSE: 2 TABS
     Route: 048
     Dates: start: 20071001
  3. NIFEDIPINE [Concomitant]
     Dosage: DOSE: 3 TABS
     Route: 048
     Dates: start: 20071001
  4. FOLIC ACID [Concomitant]
     Dosage: DOSE: 1 TAB
     Route: 048
     Dates: start: 20071001
  5. APRESOLINA [Concomitant]
     Dosage: DOSE: 3 TABS
     Route: 048
     Dates: start: 20071001
  6. ATENOLOL [Concomitant]
     Dosage: DOSE: 1 TAB
     Route: 048
     Dates: start: 20071001
  7. CAPTOPRIL [Concomitant]
     Dosage: DOSE: 3 TABS
     Route: 048
     Dates: start: 20071001
  8. AAS [Concomitant]
     Dosage: DOSE: 1 TAB
     Route: 048
     Dates: start: 20071001
  9. VIT B COMPLEX [Concomitant]
     Dosage: DOSE: 2 TABS
     Route: 048
     Dates: start: 20071001

REACTIONS (4)
  - GAIT DISTURBANCE [None]
  - SOMNOLENCE [None]
  - SYNCOPE [None]
  - VISION BLURRED [None]
